FAERS Safety Report 24009643 (Version 1)
Quarter: 2024Q2

REPORT INFORMATION
  Report Type: Spontaneous
  Country: US (occurrence: US)
  Receive Date: 20240625
  Receipt Date: 20240625
  Transmission Date: 20240716
  Serious: No
  Sender: FDA-Public Use
  Company Number: US-PFIZER INC-202400197076

PATIENT
  Age: 16 Year
  Sex: Male
  Weight: 62.23 kg

DRUGS (1)
  1. GENOTROPIN [Suspect]
     Active Substance: SOMATROPIN
     Indication: Growth hormone deficiency
     Dosage: 2MG BY INJECTION EVERY NIGHT
     Dates: start: 20230420

REACTIONS (1)
  - Device mechanical issue [Unknown]
